FAERS Safety Report 9442895 (Version 1)
Quarter: 2013Q3

REPORT INFORMATION
  Report Type: Spontaneous
  Country: GB (occurrence: GB)
  Receive Date: 20130806
  Receipt Date: 20130806
  Transmission Date: 20140515
  Serious: Yes (Other)
  Sender: FDA-Public Use
  Company Number: GB-TEVA-421411ISR

PATIENT
  Age: 81 Year
  Sex: Female

DRUGS (6)
  1. RISEDRONATE SODIUM [Suspect]
     Dates: start: 20130225
  2. CALCICHEW D3 [Concomitant]
     Dates: start: 20130225
  3. GLYCEROL [Concomitant]
     Dates: start: 20130424, end: 20130425
  4. GLYCEROL [Concomitant]
     Dates: start: 20130605, end: 20130606
  5. CO-CODAMOL [Concomitant]
     Dates: start: 20130531, end: 20130612
  6. MAGNESIUM CITRATE [Concomitant]
     Dates: start: 20130605, end: 20130705

REACTIONS (1)
  - Allergic myocarditis [Recovering/Resolving]
